FAERS Safety Report 20977722 (Version 5)
Quarter: 2023Q4

REPORT INFORMATION
  Report Type: Spontaneous
  Country: US (occurrence: US)
  Receive Date: 20220618
  Receipt Date: 20231222
  Transmission Date: 20240109
  Serious: Yes (Other)
  Sender: FDA-Public Use
  Company Number: US-JNJFOC-20220625991

PATIENT
  Age: 60 Year
  Sex: Female

DRUGS (35)
  1. ELMIRON [Suspect]
     Active Substance: PENTOSAN POLYSULFATE SODIUM
     Indication: Cystitis interstitial
     Dosage: 2 - 100 MG CAPSULES 2X/DAY FOR 400 MG TOTAL
     Route: 048
     Dates: start: 20031111, end: 2009
  2. ELMIRON [Suspect]
     Active Substance: PENTOSAN POLYSULFATE SODIUM
     Dosage: 2 - 100 MG CAPSULES AM AND 1 - 100 MG CAPSULE IN PM FOR 300 MG TOTAL
     Route: 048
     Dates: start: 2009, end: 201002
  3. ELMIRON [Suspect]
     Active Substance: PENTOSAN POLYSULFATE SODIUM
     Dosage: 2 100 MG AM AND 1 OR 2 -100 OR 200 MG IN PM FOR 300 TO 400 MG TOTAL, AND TOOK 400 DURING FLARE UPS
     Route: 048
     Dates: start: 201002, end: 2011
  4. ELMIRON [Suspect]
     Active Substance: PENTOSAN POLYSULFATE SODIUM
     Dosage: 2 100 MG AM AND 1 OR 2 -100 OR 200 MG IN PM FOR 300 TO 400 MG TOTAL, AND TOOK 400 DURING FLARE UPS
     Route: 048
     Dates: start: 20110216, end: 201103
  5. ELMIRON [Suspect]
     Active Substance: PENTOSAN POLYSULFATE SODIUM
     Dosage: 100 MG CAPSULES 3X/DAY FOR 300 MG TOTAL
     Route: 048
     Dates: start: 20110308, end: 201107
  6. ELMIRON [Suspect]
     Active Substance: PENTOSAN POLYSULFATE SODIUM
     Dosage: 100 MG CAPSULES 3X/DAY FOR 300 MG TOTAL
     Route: 048
     Dates: start: 20110710, end: 201207
  7. ELMIRON [Suspect]
     Active Substance: PENTOSAN POLYSULFATE SODIUM
     Dosage: 100 MG CAPSULES 3X/DAY FOR 300 MG TOTAL
     Route: 048
     Dates: start: 20120716, end: 201403
  8. ELMIRON [Suspect]
     Active Substance: PENTOSAN POLYSULFATE SODIUM
     Dosage: 100 MG CAPSULES 3X/DAY FOR 300 MG TOTAL
     Route: 048
     Dates: start: 20140307, end: 201501
  9. ELMIRON [Suspect]
     Active Substance: PENTOSAN POLYSULFATE SODIUM
     Dosage: 100 MG CAPSULES 3X/DAY FOR 300 MG TOTAL
     Route: 048
     Dates: start: 20150128, end: 201502
  10. ELMIRON [Suspect]
     Active Substance: PENTOSAN POLYSULFATE SODIUM
     Dosage: 2 - 100 MG CAPSULES 2X/DAY FOR 400 MG TOTAL
     Route: 048
     Dates: start: 20150212, end: 201503
  11. ELMIRON [Suspect]
     Active Substance: PENTOSAN POLYSULFATE SODIUM
     Dosage: 100 MG CAPSULES 3X/DAY FOR 300 MG TOTAL
     Route: 048
     Dates: start: 20150317, end: 201507
  12. ELMIRON [Suspect]
     Active Substance: PENTOSAN POLYSULFATE SODIUM
     Dosage: 2 - 100 MG CAPSULES 2X/DAY FOR 400 MG TOTAL
     Route: 048
     Dates: start: 20150706, end: 201510
  13. ELMIRON [Suspect]
     Active Substance: PENTOSAN POLYSULFATE SODIUM
     Dosage: 2 - 100 MG CAPSULES AM AND 1 - 100 MG CAPSULE IN PM FOR 300 MG TOTAL
     Route: 048
     Dates: start: 20151015, end: 201512
  14. ELMIRON [Suspect]
     Active Substance: PENTOSAN POLYSULFATE SODIUM
     Dosage: 100 MG CAPSULES 2X/DAY FOR 200 MG TOTAL
     Route: 048
     Dates: start: 20151205, end: 201702
  15. ELMIRON [Suspect]
     Active Substance: PENTOSAN POLYSULFATE SODIUM
     Dosage: 2 - 100 MG CAPSULES AM AND 1 - 100 MG CAPSULE IN PM FOR 300 MG TOTAL
     Route: 048
     Dates: start: 201702, end: 201703
  16. ELMIRON [Suspect]
     Active Substance: PENTOSAN POLYSULFATE SODIUM
     Dosage: 100 MG CAPSULES 2X/DAY FOR 200 MG TOTAL
     Route: 048
     Dates: start: 20170322, end: 201705
  17. ELMIRON [Suspect]
     Active Substance: PENTOSAN POLYSULFATE SODIUM
     Dosage: 100 MG CAPSULES 2X/DAY FOR 200 MG TOTAL
     Route: 048
     Dates: start: 20170517, end: 201802
  18. ELMIRON [Suspect]
     Active Substance: PENTOSAN POLYSULFATE SODIUM
     Dosage: 2 - 100 MG CAPSULES AM AND 1- 100 MG CAPSULE IN PM FOR 300 MG TOTAL
     Route: 048
     Dates: start: 201802, end: 201806
  19. ELMIRON [Suspect]
     Active Substance: PENTOSAN POLYSULFATE SODIUM
     Dosage: 2 - 100 MG CAPSULES 2X/DAY FOR 400 MG TOTAL
     Route: 048
     Dates: start: 201806, end: 201908
  20. ELMIRON [Suspect]
     Active Substance: PENTOSAN POLYSULFATE SODIUM
     Dosage: 2 - 100 MG CAPSULES 2X/DAY FOR 400 MG TOTAL
     Route: 048
     Dates: start: 201908, end: 202001
  21. ELMIRON [Suspect]
     Active Substance: PENTOSAN POLYSULFATE SODIUM
     Dosage: 2 - 100 MG CAPSULES AM AND 1 - 100 MG CAPSULE IN PM FOR 300 MG TOTAL
     Route: 048
     Dates: start: 20201119, end: 20201216
  22. ELMIRON [Suspect]
     Active Substance: PENTOSAN POLYSULFATE SODIUM
     Dosage: 100 MG 1 CAPSULE THRICE A DAY
     Route: 048
  23. CARTIA XT [Concomitant]
     Active Substance: DILTIAZEM HYDROCHLORIDE
     Indication: Hypertension
     Dates: start: 2011
  24. CARTIA XT [Concomitant]
     Active Substance: DILTIAZEM HYDROCHLORIDE
     Indication: Atrial fibrillation
     Dates: start: 20150331
  25. CARTIA XT [Concomitant]
     Active Substance: DILTIAZEM HYDROCHLORIDE
     Dates: end: 2016
  26. CARTIA XT [Concomitant]
     Active Substance: DILTIAZEM HYDROCHLORIDE
     Dates: start: 2016
  27. PREDNISONE [Concomitant]
     Active Substance: PREDNISONE
     Indication: Cellulitis
     Dates: start: 2009, end: 2015
  28. PREDNISONE [Concomitant]
     Active Substance: PREDNISONE
     Indication: Crohn^s disease
  29. PREMARIN [Concomitant]
     Active Substance: ESTROGENS, CONJUGATED
     Indication: Vulvovaginal dryness
     Route: 067
     Dates: start: 2012
  30. PREMARIN [Concomitant]
     Active Substance: ESTROGENS, CONJUGATED
     Route: 067
     Dates: start: 2013, end: 202103
  31. HYDROCHLOROTHIAZIDE\TRIAMTERENE [Concomitant]
     Active Substance: HYDROCHLOROTHIAZIDE\TRIAMTERENE
     Indication: Blood pressure measurement
     Dosage: 37.5 MG-25 MG
     Route: 065
     Dates: start: 2003, end: 2015
  32. VESICARE [Concomitant]
     Active Substance: SOLIFENACIN SUCCINATE
     Indication: Hypertonic bladder
     Dates: start: 2011, end: 2017
  33. DILTIAZEM HYDROCHLORIDE [Concomitant]
     Active Substance: DILTIAZEM HYDROCHLORIDE
     Indication: Hypertension
     Dates: start: 2011, end: 2015
  34. DILTIAZEM HYDROCHLORIDE [Concomitant]
     Active Substance: DILTIAZEM HYDROCHLORIDE
     Indication: Atrial fibrillation
  35. ZANTAC [Concomitant]
     Active Substance: RANITIDINE HYDROCHLORIDE
     Indication: Reflux gastritis
     Route: 065
     Dates: start: 2013, end: 2013

REACTIONS (4)
  - Dry age-related macular degeneration [Not Recovered/Not Resolved]
  - Pigmentary maculopathy [Not Recovered/Not Resolved]
  - Depression [Not Recovered/Not Resolved]
  - Off label use [Unknown]

NARRATIVE: CASE EVENT DATE: 20031111
